FAERS Safety Report 4922082-0 (Version None)
Quarter: 2006Q1

REPORT INFORMATION
  Report Type: 
  Country: None (occurrence: None)
  Receive Date: 20060224
  Receipt Date: 20051214
  Transmission Date: 20060701
  Serious: Yes (Hospitalization)
  Sender: FDA-Public Use
  Company Number: US-AMGEN-US161344

PATIENT
  Age: 14 Year
  Sex: Female

DRUGS (8)
  1. ARANESP [Suspect]
     Indication: DIALYSIS
     Route: 058
     Dates: start: 20051101, end: 20051202
  2. DEPAKOTE [Suspect]
     Dates: end: 20051229
  3. CLONAZEPAM [Concomitant]
  4. FOLATE SODIUM [Concomitant]
  5. MULTIVITAMIN [Concomitant]
  6. CALCITRIOL [Concomitant]
  7. FERROUS GLUCONATE [Concomitant]
  8. RENAGEL [Concomitant]

REACTIONS (7)
  - ANAEMIA [None]
  - DRUG TOXICITY [None]
  - HYPERPARATHYROIDISM SECONDARY [None]
  - MARROW HYPERPLASIA [None]
  - MYELODYSPLASTIC SYNDROME [None]
  - RETICULOCYTE COUNT DECREASED [None]
  - VIRAL INFECTION [None]
